FAERS Safety Report 8507407-1 (Version None)
Quarter: 2012Q3

REPORT INFORMATION
  Report Type: 
  Country: None (occurrence: None)
  Receive Date: 20120712
  Receipt Date: 20120703
  Transmission Date: 20120928
  Serious: Yes (Hospitalization)
  Sender: FDA-Public Use
  Company Number: VN-BAXTER-2012BAX010977

PATIENT
  Age: 49 Year
  Sex: Female

DRUGS (1)
  1. DIANEAL PD-2 PERITONEAL DIALYSIS SOLUTION WITH 1.5% DEXTROSE [Suspect]
     Route: 033
     Dates: start: 20120628

REACTIONS (2)
  - DIARRHOEA [None]
  - PERITONITIS [None]
